FAERS Safety Report 5142226-8 (Version None)
Quarter: 2006Q4

REPORT INFORMATION
  Report Type: 
  Country: None (occurrence: None)
  Receive Date: 20061030
  Receipt Date: 20061030
  Transmission Date: 20070319
  Serious: Yes (Death, Life-Threatening, Hospitalization)
  Sender: FDA-Public Use
  Company Number: None

PATIENT
  Age: 92 Year
  Sex: Female
  Weight: 72.5755 kg

DRUGS (4)
  1. AVELOX [Suspect]
     Indication: BRONCHITIS
     Dosage: UNKNOWN     UNKNOWN
  2. AVELOX [Suspect]
     Indication: PNEUMONIA
     Dosage: UNKNOWN     UNKNOWN
  3. AVELOX [Suspect]
     Indication: SEPSIS
     Dosage: UNKNOWN     UNKNOWN
  4. AVELOX [Suspect]
     Indication: URINARY TRACT INFECTION
     Dosage: UNKNOWN     UNKNOWN

REACTIONS (8)
  - DEMENTIA [None]
  - DRUG HYPERSENSITIVITY [None]
  - EYE INFECTION [None]
  - FLUID INTAKE REDUCED [None]
  - ORAL INTAKE REDUCED [None]
  - SEPSIS [None]
  - STEVENS-JOHNSON SYNDROME [None]
  - VISUAL DISTURBANCE [None]
